FAERS Safety Report 6632284-3 (Version None)
Quarter: 2010Q1

REPORT INFORMATION
  Report Type: 
  Country: None (occurrence: None)
  Receive Date: 20100312
  Receipt Date: 20100211
  Transmission Date: 20100710
  Serious: Yes (Other)
  Sender: FDA-Public Use
  Company Number: A0843583A

PATIENT
  Sex: Male

DRUGS (4)
  1. VALTREX [Suspect]
     Dosage: 1000UD THREE TIMES PER DAY
     Route: 065
     Dates: start: 20091110, end: 20091110
  2. PLAVIX [Concomitant]
     Indication: CEREBROVASCULAR ACCIDENT
     Dosage: 75MG PER DAY
     Route: 065
     Dates: start: 20080801, end: 20091110
  3. LYRICA [Concomitant]
     Indication: DIABETIC NEUROPATHY
     Dosage: 25MG AT NIGHT
     Route: 065
     Dates: start: 20091008, end: 20091110
  4. UNSPECIFIED MEDICATIONS [Concomitant]
     Route: 065

REACTIONS (2)
  - IDIOPATHIC THROMBOCYTOPENIC PURPURA [None]
  - PLATELET COUNT DECREASED [None]
